FAERS Safety Report 4402736-5 (Version None)
Quarter: 2004Q3

REPORT INFORMATION
  Report Type: 
  Country: None (occurrence: None)
  Receive Date: 20040721
  Receipt Date: 20031030
  Transmission Date: 20050211
  Serious: No
  Sender: FDA-Public Use
  Company Number: US-BRISTOL-MYERS SQUIBB COMPANY-12422820

PATIENT
  Age: 82 Year
  Sex: Female
  Weight: 77 kg

DRUGS (4)
  1. ESTRADIOL [Suspect]
     Indication: MENOPAUSE
  2. PRINIVIL [Concomitant]
  3. ZOCOR [Concomitant]
  4. ZOLOFT [Concomitant]

REACTIONS (2)
  - LOOSE STOOLS [None]
  - STOMACH DISCOMFORT [None]
